FAERS Safety Report 23189142 (Version 2)
Quarter: 2023Q4

REPORT INFORMATION
  Report Type: Spontaneous
  Country: DE (occurrence: DE)
  Receive Date: 20231115
  Receipt Date: 20231123
  Transmission Date: 20240110
  Serious: Yes (Death)
  Sender: FDA-Public Use
  Company Number: DE-TEVA-2023-DE-2886682

PATIENT
  Sex: Male

DRUGS (2)
  1. TEMOZOLOMIDE [Suspect]
     Active Substance: TEMOZOLOMIDE
     Indication: Glioblastoma
     Dosage: RECEIVED A TOTAL OF MORE THAN 180 CONTINUOUS CYCLES FOR MORE THAN 15 YEARS
     Route: 065
  2. TEMOZOLOMIDE [Suspect]
     Active Substance: TEMOZOLOMIDE
     Indication: Malignant glioma
     Dosage: HE CONTINUED TEMOZOLOMIDE FOR MALIGNANT IDHWT GLIOMA
     Route: 065

REACTIONS (1)
  - Malignant glioma [Fatal]
